FAERS Safety Report 5872017-1 (Version None)
Quarter: 2008Q3

REPORT INFORMATION
  Report Type: 
  Country: None (occurrence: None)
  Receive Date: 20080904
  Receipt Date: 20080904
  Transmission Date: 20090109
  Serious: Yes (Hospitalization)
  Sender: FDA-Public Use
  Company Number: None

PATIENT
  Age: 68 Year
  Sex: Male
  Weight: 85.7298 kg

DRUGS (14)
  1. TAXOTERE [Suspect]
     Indication: PROSTATE CANCER
     Dosage: 144 MG (IV)
     Route: 042
     Dates: start: 20080619, end: 20080820
  2. BEVACIZUMAB 15MG/KG [Suspect]
     Indication: PROSTATE CANCER
     Dosage: 1390 MG (IV)
     Route: 042
     Dates: start: 20080619, end: 20080820
  3. RAD001 5MG [Suspect]
     Indication: PROSTATE CANCER
     Dosage: 5 MG ORAL
     Route: 048
     Dates: start: 20080619, end: 20080820
  4. ACYCLOVIR [Concomitant]
  5. ASPIRIN [Concomitant]
  6. CELEXA [Concomitant]
  7. CLINDAMUCIN [Concomitant]
  8. DURAGESIC-100 [Concomitant]
  9. NEURONTIN [Concomitant]
  10. SENNA [Concomitant]
  11. ZOFRAN [Concomitant]
  12. LUPRON [Concomitant]
  13. OSCAL D [Concomitant]
  14. VALTREX [Concomitant]

REACTIONS (2)
  - NEUTROPENIA [None]
  - OSTEONECROSIS [None]
